FAERS Safety Report 7927125-8 (Version None)
Quarter: 2011Q4

REPORT INFORMATION
  Report Type: 
  Country: None (occurrence: None)
  Receive Date: 20111118
  Receipt Date: 20111108
  Transmission Date: 20120403
  Serious: Yes (Hospitalization)
  Sender: FDA-Public Use
  Company Number: US-JNJFOC-20111105000

PATIENT
  Sex: Male
  Weight: 26.9 kg

DRUGS (5)
  1. MERCAPTOPURINE [Concomitant]
  2. PEPTAMEN [Concomitant]
  3. HUMIRA [Concomitant]
     Dates: start: 20100415, end: 20110609
  4. MESALAMINE [Concomitant]
     Route: 048
  5. REMICADE [Suspect]
     Indication: CROHN'S DISEASE
     Route: 042
     Dates: start: 20090602, end: 20100216

REACTIONS (1)
  - CROHN'S DISEASE [None]
